FAERS Safety Report 6230379-X (Version None)
Quarter: 2009Q2

REPORT INFORMATION
  Report Type: 
  Country: None (occurrence: None)
  Receive Date: 20090611
  Receipt Date: 20090529
  Transmission Date: 20091009
  Serious: Yes (Other)
  Sender: FDA-Public Use
  Company Number: 235644K09USA

PATIENT
  Age: 68 Year
  Sex: Female

DRUGS (8)
  1. REBIF [Suspect]
     Indication: MULTIPLE SCLEROSIS
     Dosage: 44 MCG, 3 IN 1 WEEKS, SUBCUTANEOUS
     Route: 058
     Dates: start: 20080915
  2. CRESTOR [Concomitant]
  3. TRICOR [Concomitant]
  4. PLAVIX [Concomitant]
  5. ASPIRIN [Concomitant]
  6. LEVOTHYROXINE (LEVOTHYROXINE /00068001/) [Concomitant]
  7. AZITHROMYCIN [Concomitant]
  8. DETROL [Concomitant]

REACTIONS (7)
  - CENTRAL NERVOUS SYSTEM LESION [None]
  - CONDITION AGGRAVATED [None]
  - CONVULSION [None]
  - FEELING ABNORMAL [None]
  - MOVEMENT DISORDER [None]
  - SOMNAMBULISM [None]
  - VISUAL IMPAIRMENT [None]
